FAERS Safety Report 17669730 (Version 1)
Quarter: 2020Q2

REPORT INFORMATION
  Report Type: Spontaneous
  Country: DE (occurrence: CH)
  Receive Date: 20200415
  Receipt Date: 20200415
  Transmission Date: 20200713
  Serious: Yes (Hospitalization, Other)
  Sender: FDA-Public Use
  Company Number: CH-ELI_LILLY_AND_COMPANY-CH202004004655

PATIENT
  Age: 49 Year
  Sex: Male

DRUGS (8)
  1. ERBITUX [Suspect]
     Active Substance: CETUXIMAB
     Dosage: 400 MG, UNKNOWN
     Route: 042
     Dates: start: 20190813, end: 20190813
  2. OXALIPLATIN. [Concomitant]
     Active Substance: OXALIPLATIN
     Indication: COLORECTAL ADENOCARCINOMA
     Dosage: 140 MG, UNK
     Route: 042
     Dates: start: 20190708, end: 20191111
  3. ERBITUX [Suspect]
     Active Substance: CETUXIMAB
     Dosage: 400 MG, UNKNOWN
     Route: 042
     Dates: start: 20190729, end: 20190729
  4. ERBITUX [Suspect]
     Active Substance: CETUXIMAB
     Dosage: 700 MG, UNKNOWN
     Route: 042
     Dates: start: 20190806, end: 20190806
  5. VACCINE, INFLUENZA [Suspect]
     Active Substance: INFLUENZA VIRUS VACCINE
     Indication: INFLUENZA IMMUNISATION
     Dosage: 1 DOSAGE FORM, UNK
     Route: 065
     Dates: start: 201910, end: 201910
  6. FOLINIC ACID [Concomitant]
     Active Substance: LEUCOVORIN
     Indication: COLORECTAL ADENOCARCINOMA
     Dosage: 200 MG, UNK
     Route: 042
     Dates: start: 20190708, end: 20191227
  7. FLOUROURACIL [Concomitant]
     Active Substance: FLUOROURACIL
     Indication: COLORECTAL ADENOCARCINOMA
     Dosage: 4680 MG, UNK
     Route: 042
     Dates: start: 20190708, end: 20191227
  8. ERBITUX [Suspect]
     Active Substance: CETUXIMAB
     Indication: COLORECTAL ADENOCARCINOMA
     Dosage: 700 MG, UNKNOWN
     Route: 042
     Dates: start: 20190722, end: 20190722

REACTIONS (6)
  - Paraesthesia [Recovered/Resolved]
  - Polyneuropathy [Recovered/Resolved]
  - Delusional perception [Recovered/Resolved]
  - Asthenia [Recovered/Resolved]
  - Diarrhoea [Recovered/Resolved]
  - Rash pustular [Recovered/Resolved]

NARRATIVE: CASE EVENT DATE: 20190810
